FAERS Safety Report 19364473 (Version 6)
Quarter: 2021Q4

REPORT INFORMATION
  Report Type: Report from Study
  Country: CA (occurrence: CA)
  Receive Date: 20210603
  Receipt Date: 20211223
  Transmission Date: 20220303
  Serious: Yes (Hospitalization)
  Sender: FDA-Public Use
  Company Number: NVSC2021CA062515

PATIENT
  Age: 81 Year
  Sex: Female

DRUGS (5)
  1. ERELZI [Suspect]
     Active Substance: ETANERCEPT-SZZS
     Indication: Rheumatoid arthritis
     Dosage: 50 MG, QW
     Route: 058
     Dates: start: 20210311
  2. METHOTREXATE [Concomitant]
     Active Substance: METHOTREXATE
     Indication: Product used for unknown indication
     Dosage: UNK
     Route: 048
     Dates: start: 2012, end: 2014
  3. HYDROXYCHLOROQUINE [Concomitant]
     Active Substance: HYDROXYCHLOROQUINE
     Indication: Product used for unknown indication
     Dosage: UNK
     Route: 065
     Dates: start: 201405, end: 201707
  4. SULFASALAZINE [Concomitant]
     Active Substance: SULFASALAZINE
     Indication: Product used for unknown indication
     Dosage: 1000 MG, BID
     Route: 048
     Dates: start: 201405, end: 20210121
  5. LEFLUNOMIDE [Concomitant]
     Active Substance: LEFLUNOMIDE
     Indication: Product used for unknown indication
     Dosage: UNK UNK, QD
     Route: 048
     Dates: start: 20210121

REACTIONS (10)
  - Respiratory disorder [Unknown]
  - Dyspnoea [Unknown]
  - Injection site pain [Unknown]
  - Trismus [Unknown]
  - Pain [Unknown]
  - Back pain [Unknown]
  - Neck pain [Unknown]
  - Synovial cyst [Unknown]
  - Drug intolerance [Unknown]
  - Rash [Unknown]

NARRATIVE: CASE EVENT DATE: 20210311
